FAERS Safety Report 5636805-9 (Version None)
Quarter: 2008Q1

REPORT INFORMATION
  Report Type: 
  Country: None (occurrence: None)
  Receive Date: 20080225
  Receipt Date: 20080213
  Transmission Date: 20080703
  Serious: Yes (Hospitalization)
  Sender: FDA-Public Use
  Company Number: SE-WYE-H02708408

PATIENT
  Sex: Male

DRUGS (7)
  1. CORDARONE [Suspect]
     Indication: ATRIAL FIBRILLATION
     Route: 048
     Dates: start: 20060928, end: 20070206
  2. ATACAND [Concomitant]
  3. PANTOPRAZOLE SODIUM [Concomitant]
  4. SPIRONOLACTONE [Concomitant]
  5. VITAMIN B COMPLEX CAP [Concomitant]
  6. BISOPROLOL FUMARATE [Concomitant]
  7. IMPUGAN [Concomitant]

REACTIONS (2)
  - INTRACRANIAL PRESSURE INCREASED [None]
  - POLYNEUROPATHY [None]
